FAERS Safety Report 5318442-9 (Version None)
Quarter: 2007Q2

REPORT INFORMATION
  Report Type: 
  Country: None (occurrence: None)
  Receive Date: 20070430
  Receipt Date: 20070419
  Transmission Date: 20071010
  Serious: Yes (Life-Threatening)
  Sender: FDA-Public Use
  Company Number: GXKR2007GB03605

PATIENT
  Age: 61 Year
  Sex: Male

DRUGS (3)
  1. TRIMETHOPRIM [Suspect]
     Indication: URINARY TRACT INFECTION
     Dosage: 200 MG, ORAL
     Route: 048
     Dates: start: 20070405, end: 20070405
  2. CIPROFLOXACIN [Concomitant]
  3. TOLTERODINE TARTRATE [Concomitant]

REACTIONS (3)
  - ERYTHEMA [None]
  - OEDEMA PERIPHERAL [None]
  - URTICARIA [None]
